FAERS Safety Report 15278106 (Version 2)
Quarter: 2018Q3

REPORT INFORMATION
  Report Type: Report from Study
  Country: US (occurrence: US)
  Receive Date: 20180814
  Receipt Date: 20180926
  Transmission Date: 20181010
  Serious: Yes (Hospitalization, Other)
  Sender: FDA-Public Use
  Company Number: US-ACTELION-A-NJ2018-172869

PATIENT
  Age: 51 Year
  Sex: Male

DRUGS (1)
  1. OPSUMIT [Suspect]
     Active Substance: MACITENTAN
     Indication: PRODUCT USED FOR UNKNOWN INDICATION
     Dosage: 10 MG, QD
     Route: 048
     Dates: start: 20180417

REACTIONS (7)
  - Pulmonary oedema [Unknown]
  - Abdominal pain [Recovering/Resolving]
  - Drug dose omission [Recovered/Resolved]
  - Oedema peripheral [Unknown]
  - Ascites [Unknown]
  - Fluid retention [Not Recovered/Not Resolved]
  - Cardiac failure congestive [Unknown]

NARRATIVE: CASE EVENT DATE: 20180520
